FAERS Safety Report 4545577-0 (Version None)
Quarter: 2005Q1

REPORT INFORMATION
  Report Type: 
  Country: None (occurrence: None)
  Receive Date: 20050103
  Receipt Date: 20041213
  Transmission Date: 20050727
  Serious: Yes (Other)
  Sender: FDA-Public Use
  Company Number: US_011279454

PATIENT
  Age: 72 Year
  Sex: Female
  Weight: 77 kg

DRUGS (4)
  1. EVISTA [Suspect]
     Indication: OSTEOPENIA
     Dosage: 60 MG/1 DAY
     Dates: start: 19980801, end: 20000601
  2. CALCIUM GLUCONATE [Concomitant]
  3. VITAMIN D [Concomitant]
  4. VITAMIN E [Concomitant]

REACTIONS (9)
  - BREAST CANCER RECURRENT [None]
  - CARBOHYDRATE ANTIGEN 15-3 INCREASED [None]
  - CHEST X-RAY ABNORMAL [None]
  - COMPUTERISED TOMOGRAM ABNORMAL [None]
  - CONDITION AGGRAVATED [None]
  - LUNG NEOPLASM [None]
  - LYMPHADENOPATHY [None]
  - METASTASES TO LUNG [None]
  - METASTASES TO NECK [None]
